FAERS Safety Report 16917127 (Version 1)
Quarter: 2019Q4

REPORT INFORMATION
  Report Type: Spontaneous
  Country: FR (occurrence: FR)
  Receive Date: 20191015
  Receipt Date: 20191015
  Transmission Date: 20200122
  Serious: Yes (Death, Congenital Anomaly)
  Sender: FDA-Public Use
  Company Number: FR-TEVA-2019-FR-1120435

PATIENT
  Sex: Male

DRUGS (3)
  1. ESCITALOPRAM [Suspect]
     Active Substance: ESCITALOPRAM OXALATE
     Indication: DEPRESSION
     Route: 064
     Dates: start: 20181101, end: 20190501
  2. PAROXETINE (CHLORHYDRATE DE) ANHYDRE [Suspect]
     Active Substance: PAROXETINE
     Route: 064
     Dates: start: 20190527
  3. PAROXETINE (CHLORHYDRATE DE) ANHYDRE [Suspect]
     Active Substance: PAROXETINE
     Indication: DEPRESSION
     Route: 064
     Dates: start: 20190501, end: 20190527

REACTIONS (1)
  - Congenital diaphragmatic hernia [Fatal]

NARRATIVE: CASE EVENT DATE: 20190820
